FAERS Safety Report 19505877 (Version 2)
Quarter: 2021Q3

REPORT INFORMATION
  Report Type: Spontaneous
  Country: JP (occurrence: JP)
  Receive Date: 20210708
  Receipt Date: 20210723
  Transmission Date: 20211014
  Serious: Yes (Hospitalization, Other)
  Sender: FDA-Public Use
  Company Number: JP-ACCORD-231136

PATIENT
  Age: 64 Year
  Sex: Male

DRUGS (3)
  1. FOLINIC ACID [Suspect]
     Active Substance: LEUCOVORIN
     Indication: RECTAL CANCER
  2. FLUOROURACIL. [Suspect]
     Active Substance: FLUOROURACIL
     Indication: RECTAL CANCER
  3. OXALIPLATIN. [Suspect]
     Active Substance: OXALIPLATIN
     Indication: RECTAL CANCER

REACTIONS (6)
  - Dehydration [Recovered/Resolved]
  - Depressed level of consciousness [Recovering/Resolving]
  - Renal impairment [Unknown]
  - Seizure [Recovering/Resolving]
  - Decreased appetite [Unknown]
  - Hyperammonaemia [Recovered/Resolved]
